FAERS Safety Report 5309763-4 (Version None)
Quarter: 2007Q2

REPORT INFORMATION
  Report Type: 
  Country: None (occurrence: None)
  Receive Date: 20070427
  Receipt Date: 20061227
  Transmission Date: 20071010
  Serious: No
  Sender: FDA-Public Use
  Company Number: US-GLAXOSMITHKLINE-A0632603A

PATIENT
  Age: 45 Year
  Sex: Male

DRUGS (3)
  1. ZOFRAN [Suspect]
     Indication: PROPHYLAXIS OF NAUSEA AND VOMITING
     Dosage: 8MG THREE TIMES PER DAY
     Route: 048
     Dates: start: 20061226
  2. COMPAZINE [Suspect]
     Indication: NAUSEA
     Route: 048
  3. CHEMOTHERAPY [Concomitant]

REACTIONS (3)
  - ANOREXIA [None]
  - LETHARGY [None]
  - VISION BLURRED [None]
